FAERS Safety Report 21034088 (Version 1)
Quarter: 2022Q3

REPORT INFORMATION
  Report Type: Spontaneous
  Country: US (occurrence: None)
  Receive Date: 20220701
  Receipt Date: 20220701
  Transmission Date: 20221027
  Serious: No
  Sender: FDA-Public Use
  Company Number: None

PATIENT
  Age: 74 Year
  Sex: Female
  Weight: 90 kg

DRUGS (9)
  1. TERIPARATIDE RECOMBINANT HUMAN [Suspect]
     Active Substance: TERIPARATIDE
     Indication: Compression fracture
     Dosage: OTHER QUANTITY : 1 INJECTION(S);?FREQUENCY : DAILY;?
     Route: 058
     Dates: start: 20210315
  2. LISINOPRIL [Concomitant]
     Active Substance: LISINOPRIL
  3. PRAVASTATIN [Concomitant]
     Active Substance: PRAVASTATIN
  4. PRAMIPEXOLE [Concomitant]
     Active Substance: PRAMIPEXOLE
  5. SYNTHROID [Concomitant]
     Active Substance: LEVOTHYROXINE SODIUM
  6. DULOXETINE [Concomitant]
     Active Substance: DULOXETINE
  7. VITAMIN D NOS [Concomitant]
     Active Substance: VITAMIN D NOS
  8. CALCIUM CITRATE [Concomitant]
     Active Substance: CALCIUM CITRATE
  9. IRON [Concomitant]
     Active Substance: IRON

REACTIONS (2)
  - Injection site hypersensitivity [None]
  - Injection site haemorrhage [None]
